FAERS Safety Report 25401607 (Version 1)
Quarter: 2025Q2

REPORT INFORMATION
  Report Type: Spontaneous
  Country: US (occurrence: US)
  Receive Date: 20250605
  Receipt Date: 20250605
  Transmission Date: 20250716
  Serious: Yes (Other)
  Sender: ALKERMES
  Company Number: US-ALKERMES INC.-ALK-2025-001540

PATIENT
  Sex: Female

DRUGS (2)
  1. VIVITROL [Suspect]
     Active Substance: NALTREXONE
     Indication: Substance use disorder
     Route: 030
     Dates: start: 202406
  2. TREMFYA ONE PRESS [Concomitant]
     Indication: Product used for unknown indication
     Route: 065

REACTIONS (1)
  - Neck surgery [Unknown]
